FAERS Safety Report 6684320-6 (Version None)
Quarter: 2010Q2

REPORT INFORMATION
  Report Type: 
  Country: None (occurrence: None)
  Receive Date: 20100416
  Receipt Date: 20100406
  Transmission Date: 20101027
  Serious: Yes (Other)
  Sender: FDA-Public Use
  Company Number: PHHY2010FR11443

PATIENT
  Age: 70 Year
  Weight: 62.5 kg

DRUGS (4)
  1. RASILEZ [Suspect]
     Dosage: 150 MG, UNK
     Dates: start: 20091118, end: 20091218
  2. RASILEZ [Suspect]
     Dosage: 300 MG
     Route: 065
     Dates: start: 20091218, end: 20100113
  3. RASILEZ [Suspect]
     Dosage: 150 MG, UNK
     Dates: start: 20100113, end: 20100120
  4. ANTIHYPERTENSIVES [Concomitant]
     Route: 065

REACTIONS (5)
  - BLOOD CREATININE ABNORMAL [None]
  - CONDITION AGGRAVATED [None]
  - HAEMODIALYSIS [None]
  - HYPERKALAEMIA [None]
  - RENAL FAILURE CHRONIC [None]
